FAERS Safety Report 15959688 (Version 1)
Quarter: 2019Q1

REPORT INFORMATION
  Report Type: Report from Study
  Country: CR (occurrence: CR)
  Receive Date: 20190214
  Receipt Date: 20190214
  Transmission Date: 20190417
  Serious: Yes (Other)
  Sender: FDA-Public Use
  Company Number: CR-SANIK-2019SA041555AA

PATIENT
  Age: 85 Year
  Sex: Female

DRUGS (1)
  1. CLOPIDOGREL BISULFATE. [Suspect]
     Active Substance: CLOPIDOGREL BISULFATE
     Indication: CARDIOVASCULAR DISORDER
     Dosage: 1 DF (1 ORAL TABLET OF 75 MG OF CLOPIDOGREL EVERY 24 HOURS), QD
     Route: 048
     Dates: start: 2014

REACTIONS (1)
  - Bioptic eye surgery [Unknown]

NARRATIVE: CASE EVENT DATE: 2018
